FAERS Safety Report 10562242 (Version 2)
Quarter: 2014Q4

REPORT INFORMATION
  Report Type: Spontaneous
  Country: CN (occurrence: CN)
  Receive Date: 20141104
  Receipt Date: 20141128
  Transmission Date: 20150529
  Serious: Yes (Hospitalization)
  Sender: FDA-Public Use
  Company Number: CN-JNJFOC-20141012960

PATIENT
  Age: 64 Year
  Sex: Male

DRUGS (5)
  1. AMINOPHENAZONE W/PHENAZONE/BARBITAL [Suspect]
     Active Substance: AMINOPHENAZONE\ANTIPYRINE\BARBITAL
     Indication: PYREXIA
     Route: 030
     Dates: start: 20130801, end: 20130804
  2. INDOMETACIN [Suspect]
     Active Substance: INDOMETHACIN
     Indication: PYREXIA
     Route: 054
     Dates: start: 20130801, end: 20130804
  3. TYLENOL COLD + COUGH [Suspect]
     Active Substance: ACETAMINOPHEN\CHLORPHENIRAMINE MALEATE\DEXTROMETHORPHAN HYDROBROMIDE\PSEUDOEPHEDRINE HYDROCHLORIDE
     Indication: COUGH
     Route: 048
     Dates: start: 20130729, end: 20130801
  4. AZITHROMYCIN [Suspect]
     Active Substance: AZITHROMYCIN ANHYDROUS
     Indication: PNEUMONIA
     Route: 048
     Dates: start: 20130801, end: 20130804
  5. CEFTRIAXONE SODIUM. [Suspect]
     Active Substance: CEFTRIAXONE SODIUM
     Indication: PNEUMONIA
     Route: 042
     Dates: start: 20130801, end: 20130804

REACTIONS (4)
  - Dermatitis exfoliative [Recovering/Resolving]
  - Faeces discoloured [Recovering/Resolving]
  - Bronchitis [Recovering/Resolving]
  - Diarrhoea [Recovering/Resolving]

NARRATIVE: CASE EVENT DATE: 20130801
